FAERS Safety Report 21819735 (Version 1)
Quarter: 2023Q1

REPORT INFORMATION
  Report Type: Spontaneous
  Country: US (occurrence: US)
  Receive Date: 20230104
  Receipt Date: 20230104
  Transmission Date: 20230417
  Serious: Yes (Congenital Anomaly, Other)
  Sender: FDA-Public Use
  Company Number: FR-ABBVIE-21K-056-3942884-00

PATIENT
  Age: 48 Year
  Sex: Female

DRUGS (2)
  1. VALPROATE SODIUM [Suspect]
     Active Substance: VALPROATE SODIUM
     Indication: Maternal exposure timing unspecified
     Route: 064
  2. VALPROATE SODIUM [Suspect]
     Active Substance: VALPROATE SODIUM
     Indication: Maternal exposure timing unspecified
     Route: 064

REACTIONS (29)
  - Craniosynostosis [Unknown]
  - Hypotonia [Unknown]
  - Dysmorphism [Unknown]
  - Hypertelorism [Unknown]
  - Arnold-Chiari malformation [Unknown]
  - Foot deformity [Unknown]
  - Joint laxity [Unknown]
  - Hydrocephalus [Unknown]
  - Scoliosis [Unknown]
  - Prominent epicanthal folds [Unknown]
  - Disturbance in social behaviour [Unknown]
  - Behaviour disorder [Unknown]
  - Disturbance in attention [Unknown]
  - Speech disorder developmental [Unknown]
  - Complication associated with device [Unknown]
  - Nasal disorder [Unknown]
  - Visual impairment [Unknown]
  - Enuresis [Unknown]
  - Ear disorder [Unknown]
  - Pharyngeal disorder [Unknown]
  - Heart disease congenital [Unknown]
  - Foetal exposure during pregnancy [Unknown]
  - Bladder disorder [Unknown]
  - Neural tube defect [Unknown]
  - Mitral valve incompetence [Unknown]
  - Dyscalculia [Unknown]
  - Syringomyelia [Unknown]
  - Cognitive disorder [Unknown]
  - Emotional disorder [Unknown]

NARRATIVE: CASE EVENT DATE: 20040514
